FAERS Safety Report 22324541 (Version 2)
Quarter: 2023Q2

REPORT INFORMATION
  Report Type: Spontaneous
  Country: JP (occurrence: JP)
  Receive Date: 20230516
  Receipt Date: 20230527
  Transmission Date: 20230722
  Serious: Yes (Death, Other)
  Sender: FDA-Public Use
  Company Number: JP-Teva Takeda Yakuhin-2023-JP-001137J

PATIENT

DRUGS (1)
  1. CERCINE [Suspect]
     Active Substance: DIAZEPAM
     Indication: Product used for unknown indication
     Route: 048

REACTIONS (2)
  - Ileus [Fatal]
  - Cardiac arrest [Fatal]

NARRATIVE: CASE EVENT DATE: 20230509
